FAERS Safety Report 24251371 (Version 2)
Quarter: 2024Q3

REPORT INFORMATION
  Report Type: Spontaneous
  Country: US (occurrence: US)
  Receive Date: 20240826
  Receipt Date: 20240916
  Transmission Date: 20241016
  Serious: No
  Sender: BAUSCH AND LOMB
  Company Number: US-BAUSCHBL-2024BNL031901

PATIENT
  Age: 86 Year
  Sex: Female

DRUGS (1)
  1. MIEBO [Suspect]
     Active Substance: PERFLUOROHEXYLOCTANE
     Indication: Product used for unknown indication
     Route: 047

REACTIONS (3)
  - Ocular hyperaemia [Unknown]
  - Product use issue [Unknown]
  - Wrong dose [Unknown]
